FAERS Safety Report 7949483-0 (Version None)
Quarter: 2011Q4

REPORT INFORMATION
  Report Type: 
  Country: None (occurrence: None)
  Receive Date: 20111130
  Receipt Date: 20111118
  Transmission Date: 20120403
  Serious: Yes (Hospitalization)
  Sender: FDA-Public Use
  Company Number: US-BAYER-2011-032238

PATIENT
  Age: 23 Year
  Sex: Female
  Weight: 107.94 kg

DRUGS (9)
  1. NSAID'S [Concomitant]
     Route: 048
  2. DROSPIRENONE AND ETHINYL ESTRADIOL [Suspect]
     Indication: PREMENSTRUAL SYNDROME
     Dosage: UNK
     Dates: start: 20100801, end: 20110101
  3. YAZ [Suspect]
     Indication: PREMENSTRUAL SYNDROME
     Dosage: UNK
     Dates: start: 20070701, end: 20100501
  4. YAZ [Suspect]
  5. DROSPIRENONE AND ETHINYL ESTRADIOL [Suspect]
  6. PROZAC [Concomitant]
     Dosage: 40 MG, DAILY
     Route: 048
     Dates: start: 20060101, end: 20100101
  7. METFORMIN HCL [Concomitant]
     Dosage: 500 MG, BID
     Route: 048
     Dates: start: 20040101
  8. SYNTHROID [Concomitant]
     Dosage: 0.15 MG, DAILY
     Route: 048
     Dates: start: 19910101
  9. HYDROXYZINE [Concomitant]
     Dosage: 25 MG, 4IW
     Route: 048
     Dates: start: 20060601

REACTIONS (14)
  - AMENORRHOEA [None]
  - VOMITING [None]
  - CONSTIPATION [None]
  - CHOLECYSTITIS CHRONIC [None]
  - ABDOMINAL PAIN [None]
  - ACUTE SINUSITIS [None]
  - DIARRHOEA [None]
  - PRURITUS [None]
  - GALLBLADDER CHOLESTEROLOSIS [None]
  - OROPHARYNGEAL PAIN [None]
  - FALL [None]
  - CHOLELITHIASIS [None]
  - LIGAMENT SPRAIN [None]
  - MENORRHAGIA [None]
